FAERS Safety Report 15375445 (Version 1)
Quarter: 2018Q3

REPORT INFORMATION
  Report Type: Spontaneous
  Country: US (occurrence: US)
  Receive Date: 20180912
  Receipt Date: 20180912
  Transmission Date: 20181010
  Serious: No
  Sender: FDA-Public Use
  Company Number: US-CELGENEUS-USA-20180902000

PATIENT
  Age: 52 Year
  Sex: Female
  Weight: 84 kg

DRUGS (8)
  1. ENASIDENIB [Suspect]
     Active Substance: ENASIDENIB
     Indication: PLASMA CELL MYELOMA
     Dosage: 10 MILLIGRAM
     Route: 048
     Dates: start: 201711
  2. ENASIDENIB [Suspect]
     Active Substance: ENASIDENIB
     Dosage: DOSE REDUCED
     Route: 048
  3. ENASIDENIB [Suspect]
     Active Substance: ENASIDENIB
     Route: 048
     Dates: start: 20180810
  4. BACTRIM DS [Concomitant]
     Active Substance: SULFAMETHOXAZOLE\TRIMETHOPRIM
     Indication: PRODUCT USED FOR UNKNOWN INDICATION
     Route: 065
  5. ELOUQUIS [Concomitant]
     Indication: PRODUCT USED FOR UNKNOWN INDICATION
     Route: 065
  6. MULTIVITAMIN [Concomitant]
     Active Substance: VITAMINS
     Indication: PRODUCT USED FOR UNKNOWN INDICATION
     Route: 065
  7. DILTIAZEM. [Concomitant]
     Active Substance: DILTIAZEM
     Indication: PRODUCT USED FOR UNKNOWN INDICATION
     Dosage: ER
     Route: 065
  8. ACYCLOVIR. [Concomitant]
     Active Substance: ACYCLOVIR
     Indication: PRODUCT USED FOR UNKNOWN INDICATION
     Route: 065

REACTIONS (1)
  - Upper respiratory tract infection [Not Recovered/Not Resolved]

NARRATIVE: CASE EVENT DATE: 201808
